FAERS Safety Report 9418312 (Version 1)
Quarter: 2013Q3

REPORT INFORMATION
  Report Type: Spontaneous
  Country: US (occurrence: US)
  Receive Date: 20130725
  Receipt Date: 20130725
  Transmission Date: 20140515
  Serious: No
  Sender: FDA-Public Use
  Company Number: US-B.I. PHARMACEUTICALS,INC./RIDGEFIELD-2013-BI-21373BP

PATIENT
  Age: 20 Month
  Sex: Female

DRUGS (1)
  1. CATAPRES TTS [Suspect]
     Route: 061

REACTIONS (1)
  - Off label use [Not Recovered/Not Resolved]
